FAERS Safety Report 9505539 (Version 1)
Quarter: 2013Q1

REPORT INFORMATION
  Report Type: Spontaneous
  Country: US (occurrence: None)
  Receive Date: 20130220
  Receipt Date: 20130220
  Transmission Date: 20140127
  Serious: No
  Sender: FDA-Public Use
  Company Number: 1000039734

PATIENT
  Age: 58 Year
  Sex: Male

DRUGS (1)
  1. VIIBYRD [Suspect]
     Indication: DEPRESSION
     Dosage: 10 MG (10 MG, 1 IN 1 D), ORAL
     Route: 048
     Dates: start: 201210, end: 201210

REACTIONS (3)
  - Asthenia [None]
  - Thinking abnormal [None]
  - Back pain [None]
